FAERS Safety Report 24424625 (Version 2)
Quarter: 2024Q4

REPORT INFORMATION
  Report Type: Spontaneous
  Country: AR (occurrence: AR)
  Receive Date: 20241010
  Receipt Date: 20241119
  Transmission Date: 20250114
  Serious: Yes (Other)
  Sender: SANDOZ
  Company Number: AR-002147023-NVSC2024AR198236

PATIENT
  Sex: Female

DRUGS (6)
  1. AZOPT [Suspect]
     Active Substance: BRINZOLAMIDE
     Indication: Glaucoma
     Dosage: 5 ML, BID
     Route: 047
     Dates: start: 20240610, end: 20240926
  2. ASPIRIN [Concomitant]
     Active Substance: ASPIRIN
     Indication: Product used for unknown indication
     Dosage: UNK, QD (AT NIGHT)
     Route: 065
  3. ATENOLOL [Concomitant]
     Active Substance: ATENOLOL
     Indication: Product used for unknown indication
     Dosage: UNK, BID
     Route: 065
  4. Glioten [Concomitant]
     Indication: Product used for unknown indication
     Dosage: UNK, BID (IN THE MORNING AND AT NIGHT)
     Route: 065
  5. LATANOPROST [Concomitant]
     Active Substance: LATANOPROST
     Indication: Glaucoma
     Dosage: UNK, QD (AT NIGHT )
     Route: 065
  6. ZOCOR [Concomitant]
     Active Substance: SIMVASTATIN
     Indication: Product used for unknown indication
     Dosage: UNK, BID (MORNING AND NIGHT)
     Route: 065

REACTIONS (2)
  - Blindness [Not Recovered/Not Resolved]
  - Product availability issue [Unknown]
